FAERS Safety Report 22399136 (Version 2)
Quarter: 2023Q2

REPORT INFORMATION
  Report Type: Spontaneous
  Country: US (occurrence: US)
  Receive Date: 20230602
  Receipt Date: 20230614
  Transmission Date: 20230721
  Serious: No
  Sender: FDA-Public Use
  Company Number: US-LUPIN PHARMACEUTICALS INC.-2023-04179

PATIENT

DRUGS (2)
  1. ALBUTEROL SULFATE [Suspect]
     Active Substance: ALBUTEROL SULFATE
     Indication: Neoplasm malignant
     Dosage: UNK, BID, 2 PUFFS TWICE A DAY
     Dates: start: 20230508
  2. ALBUTEROL SULFATE [Suspect]
     Active Substance: ALBUTEROL SULFATE
     Indication: Pulmonary function test decreased

REACTIONS (4)
  - Dyspnoea [Unknown]
  - Wrong technique in product usage process [Unknown]
  - Product use in unapproved indication [Unknown]
  - Drug dose omission by device [Unknown]
